FAERS Safety Report 24444101 (Version 2)
Quarter: 2024Q4

REPORT INFORMATION
  Report Type: Report from Study
  Country: ZA (occurrence: ZA)
  Receive Date: 20241016
  Receipt Date: 20241017
  Transmission Date: 20250115
  Serious: No
  Sender: ROCHE
  Company Number: ZA-ROCHE-2689430

PATIENT
  Age: 62 Year
  Sex: Female

DRUGS (7)
  1. MABTHERA [Suspect]
     Active Substance: RITUXIMAB
     Indication: Rheumatoid arthritis
     Dosage: IINFUSED ON DAY 1
     Route: 041
     Dates: start: 20200316
  2. RITUXIMAB [Suspect]
     Active Substance: RITUXIMAB
     Indication: Rheumatoid arthritis
     Route: 041
  3. RITUXIMAB [Suspect]
     Active Substance: RITUXIMAB
     Indication: Rheumatoid arthritis
  4. METHOTREXATE [Concomitant]
     Active Substance: METHOTREXATE
     Dosage: REASON FOR STOPPING: ALSO PREVIOUSLY GOLD ;PENICILLIN
     Dates: start: 2000
  5. SULFASALAZINE [Concomitant]
     Active Substance: SULFASALAZINE
     Dosage: REASON FOR STOPPING: OTHER: MABTHERA
     Dates: start: 2000, end: 201612
  6. CHLOROQUINE [Concomitant]
     Active Substance: CHLOROQUINE
     Dosage: REASON FOR STOPPING: MACULOPATHY
     Dates: start: 1995, end: 2005
  7. ARAVA [Concomitant]
     Active Substance: LEFLUNOMIDE
     Dates: start: 2015

REACTIONS (7)
  - Deformity [Unknown]
  - Alanine aminotransferase increased [Unknown]
  - Aspartate aminotransferase increased [Unknown]
  - White blood cell count decreased [Unknown]
  - Deformity [Unknown]
  - Off label use [Unknown]
  - Haemoglobin decreased [Unknown]
